FAERS Safety Report 4287149-1 (Version None)
Quarter: 2004Q1

REPORT INFORMATION
  Report Type: 
  Country: None (occurrence: None)
  Receive Date: 20040121
  Receipt Date: 20031114
  Transmission Date: 20041129
  Serious: Yes (Hospitalization)
  Sender: FDA-Public Use
  Company Number: A03200302760

PATIENT
  Age: 74 Year
  Sex: Male
  Weight: 72.5755 kg

DRUGS (3)
  1. PLAVIX [Suspect]
     Indication: TRANSIENT ISCHAEMIC ATTACK
     Dosage: 75 MG QD - ORAL
     Route: 048
     Dates: start: 20030628, end: 20030901
  2. ACETYLSALICYLIC ACID SRT [Concomitant]
  3. METOPROLOL TARTRATE [Concomitant]

REACTIONS (3)
  - ASTHENIA [None]
  - GASTRIC HAEMORRHAGE [None]
  - WEIGHT DECREASED [None]
